FAERS Safety Report 8825537 (Version 1)
Quarter: 2012Q4

REPORT INFORMATION
  Report Type: 
  Country: US (occurrence: US)
  Receive Date: 20121004
  Receipt Date: 20121004
  Transmission Date: 20130627
  Serious: Yes (Other)
  Sender: FDA-Public Use
  Company Number: US-ASTRAZENECA-2012SE74277

PATIENT

DRUGS (5)
  1. RHINOCORT AQUA [Suspect]
     Indication: MULTIPLE ALLERGIES
     Route: 045
     Dates: start: 2002
  2. RHINOCORT AQUA [Suspect]
     Indication: ASTHMA
     Route: 045
     Dates: start: 2002
  3. ALLEGRA [Concomitant]
     Indication: MULTIPLE ALLERGIES
  4. SINGULAIR [Concomitant]
     Indication: ASTHMA
  5. ADVAIR [Concomitant]
     Indication: ASTHMA

REACTIONS (1)
  - Thyroid cancer [Unknown]
